FAERS Safety Report 17250003 (Version 2)
Quarter: 2020Q1

REPORT INFORMATION
  Report Type: Report from Study
  Country: None (occurrence: BE)
  Receive Date: 20200109
  Receipt Date: 20200123
  Transmission Date: 20200409
  Serious: Yes (Death)
  Sender: FDA-Public Use
  Company Number: BE-ABBVIE-19K-013-2943414-00

PATIENT
  Sex: Male

DRUGS (7)
  1. DUODOPA [Suspect]
     Active Substance: CARBIDOPA\LEVODOPA
     Dosage: MD=4ML, CD=1.4ML/HR DURING 16HRS, ED=0.8ML, ND=0.7ML/HR
     Route: 050
     Dates: start: 20190923, end: 20190925
  2. ASAFLOW [Concomitant]
     Active Substance: ASPIRIN
     Dosage: AFTER START DUODOPA
  3. DUODOPA [Suspect]
     Active Substance: CARBIDOPA\LEVODOPA
     Dosage: MD=3.5ML, CD=1.4ML/HR DURING 16HRS, ED=0.8ML, ND=0.7ML/HR
     Route: 050
     Dates: start: 20190906, end: 20190923
  4. DUODOPA [Suspect]
     Active Substance: CARBIDOPA\LEVODOPA
     Indication: PARKINSON^S DISEASE
     Dosage: MD=6ML, CD=1.1ML/HR DURING 16HRS, ED=ML, ND=0.8ML/HR
     Route: 050
     Dates: start: 20120723, end: 20120725
  5. ASAFLOW [Concomitant]
     Active Substance: ASPIRIN
     Indication: PRODUCT USED FOR UNKNOWN INDICATION
     Dosage: BEFORE START DUODOPA
  6. DUODOPA [Suspect]
     Active Substance: CARBIDOPA\LEVODOPA
     Dosage: DOSES CONTINUOUSLY MONITORED AND ADAPTED
     Route: 050
     Dates: start: 20120725, end: 20190906
  7. DUODOPA [Suspect]
     Active Substance: CARBIDOPA\LEVODOPA
     Dosage: MD=4ML, CD=1.6ML/HR DURING 16HRS, ED=0.8ML, ND=1ML/HR
     Route: 050
     Dates: start: 20190925

REACTIONS (8)
  - Aphasia [Unknown]
  - Hypophagia [Unknown]
  - On and off phenomenon [Unknown]
  - General physical health deterioration [Fatal]
  - Apathy [Unknown]
  - Unevaluable event [Unknown]
  - Gait inability [Not Recovered/Not Resolved]
  - Mobility decreased [Not Recovered/Not Resolved]
